FAERS Safety Report 18461646 (Version 1)
Quarter: 2020Q4

REPORT INFORMATION
  Report Type: Spontaneous
  Country: CA (occurrence: CA)
  Receive Date: 20201104
  Receipt Date: 20201104
  Transmission Date: 20210114
  Serious: Yes (Other)
  Sender: FDA-Public Use
  Company Number: CA-AUROBINDO-AUR-APL-2019-083621

PATIENT
  Age: 52 Year
  Sex: Male

DRUGS (8)
  1. LEVETIRACETAM. [Suspect]
     Active Substance: LEVETIRACETAM
     Dosage: 250 MILLIGRAM, TWO TIMES A DAY
     Route: 065
  2. CLOBAZAM. [Suspect]
     Active Substance: CLOBAZAM
     Indication: POST-TRAUMATIC EPILEPSY
     Dosage: 10 MILLIGRAM, TWO TIMES A DAY
     Route: 065
     Dates: end: 20120203
  3. OXITRIPTAN [Suspect]
     Active Substance: OXITRIPTAN
     Indication: POST-TRAUMATIC EPILEPSY
     Dosage: 200 MILLIGRAM, 3 TIMES A DAY
     Route: 065
     Dates: start: 20120404
  4. VALPROIC ACID. [Suspect]
     Active Substance: VALPROIC ACID
     Indication: POST-TRAUMATIC EPILEPSY
     Dosage: 500 MILLIGRAM, 3 TIMES A DAY
     Route: 065
  5. VALPROIC ACID. [Suspect]
     Active Substance: VALPROIC ACID
     Dosage: 250 MILLIGRAM, FOUR TIMES/DAY
     Route: 065
  6. LEVETIRACETAM. [Suspect]
     Active Substance: LEVETIRACETAM
     Indication: POST-TRAUMATIC EPILEPSY
     Dosage: 1500 MILLIGRAM, TWO TIMES A DAY
     Route: 065
     Dates: end: 20120203
  7. LEVETIRACETAM. [Suspect]
     Active Substance: LEVETIRACETAM
     Dosage: 500 MILLIGRAM, TWO TIMES A DAY
     Route: 065
  8. GRANISETRON [Suspect]
     Active Substance: GRANISETRON
     Indication: DIARRHOEA
     Dosage: 1 MILLIGRAM, TWO TIMES A DAY
     Route: 065

REACTIONS (4)
  - Diarrhoea [Unknown]
  - Condition aggravated [Recovering/Resolving]
  - Myoclonus [Recovering/Resolving]
  - Somnolence [Recovering/Resolving]
